FAERS Safety Report 10718415 (Version 1)
Quarter: 2015Q1

REPORT INFORMATION
  Report Type: Spontaneous
  Country: US (occurrence: US)
  Receive Date: 20150119
  Receipt Date: 20150119
  Transmission Date: 20150721
  Serious: No
  Sender: FDA-Public Use
  Company Number: US-BRISTOL-MYERS SQUIBB COMPANY-BMS-2015-000568

PATIENT
  Sex: Male

DRUGS (7)
  1. BYETTA [Suspect]
     Active Substance: EXENATIDE
     Dosage: 10 ?G, BID; 10 MCG AT DINNER TIME DAILY.
     Route: 058
  2. COUMADIN [Concomitant]
     Active Substance: WARFARIN SODIUM
     Indication: PRODUCT USED FOR UNKNOWN INDICATION
     Route: 065
  3. BYETTA [Suspect]
     Active Substance: EXENATIDE
     Indication: TYPE 2 DIABETES MELLITUS
     Dosage: 5 ?G, UNK; 5 MCG AT LUNCH TIME DAILY, 5 MCG SOMETIMES IN THE MORNING
     Route: 058
  4. LEVEMIR [Concomitant]
     Active Substance: INSULIN DETEMIR
     Indication: TYPE 2 DIABETES MELLITUS
     Dosage: 10 UNIT, UNK
     Route: 058
  5. NOVOLOG [Concomitant]
     Active Substance: INSULIN ASPART
     Indication: TYPE 2 DIABETES MELLITUS
     Dosage: UNK, TID
     Route: 058
  6. GLUCOPHAGE [Concomitant]
     Active Substance: METFORMIN HYDROCHLORIDE
     Indication: TYPE 2 DIABETES MELLITUS
     Dosage: UNK
     Route: 048
  7. GLUCOTROL [Concomitant]
     Active Substance: GLIPIZIDE
     Indication: TYPE 2 DIABETES MELLITUS
     Dosage: UNK
     Route: 048

REACTIONS (8)
  - Dizziness [Unknown]
  - Blood glucose decreased [Unknown]
  - Weight increased [Unknown]
  - Incorrect dose administered [Unknown]
  - Drug ineffective [Unknown]
  - Eating disorder [Unknown]
  - Blood glucose increased [Unknown]
  - Weight decreased [Unknown]
